FAERS Safety Report 18314621 (Version 3)
Quarter: 2020Q4

REPORT INFORMATION
  Report Type: Spontaneous
  Country: BR (occurrence: BR)
  Receive Date: 20200925
  Receipt Date: 20201102
  Transmission Date: 20210113
  Serious: Yes (Other)
  Sender: FDA-Public Use
  Company Number: BR-009507513-2009BRA007581

PATIENT
  Sex: Female
  Weight: 58 kg

DRUGS (1)
  1. IMPLANON NXT [Suspect]
     Active Substance: ETONOGESTREL
     Indication: CONTRACEPTION
     Dosage: 1 IMPLANT, IN THE LEFT ARM
     Route: 059
     Dates: start: 20200818, end: 202009

REACTIONS (8)
  - Patient-device incompatibility [Unknown]
  - Implant site haemorrhage [Unknown]
  - Implant site pain [Not Recovered/Not Resolved]
  - Necrosis [Recovered/Resolved]
  - Implant site discharge [Not Recovered/Not Resolved]
  - Keloid scar [Unknown]
  - Implant site warmth [Recovered/Resolved]
  - Pain [Recovered/Resolved]

NARRATIVE: CASE EVENT DATE: 2020
